FAERS Safety Report 10232833 (Version 1)
Quarter: 2014Q2

REPORT INFORMATION
  Report Type: Spontaneous
  Country: US (occurrence: None)
  Receive Date: 20140610
  Receipt Date: 20140610
  Transmission Date: 20141212
  Serious: Yes (Hospitalization)
  Sender: FDA-Public Use
  Company Number: AUR-APL-2014-06217

PATIENT
  Age: 50 Year
  Sex: Female

DRUGS (2)
  1. PENICILLIN V [Suspect]
     Indication: PRODUCT USED FOR UNKNOWN INDICATION
  2. ENBREL (ETANERCEPT) [Suspect]
     Indication: RHEUMATOID ARTHRITIS
     Dosage: (50 MG, 1 IN 1 WK)
     Dates: start: 20121021, end: 201402

REACTIONS (14)
  - Drug hypersensitivity [None]
  - Gait disturbance [None]
  - Skin exfoliation [None]
  - Fungal infection [None]
  - Arthralgia [None]
  - Head discomfort [None]
  - Pyrexia [None]
  - Pruritus [None]
  - Blister [None]
  - Erythema [None]
  - Throat tightness [None]
  - Eye swelling [None]
  - Swelling [None]
  - Documented hypersensitivity to administered drug [None]
